FAERS Safety Report 16624272 (Version 1)
Quarter: 2019Q3

REPORT INFORMATION
  Report Type: Report from Study
  Country: ES (occurrence: ES)
  Receive Date: 20190724
  Receipt Date: 20190724
  Transmission Date: 20191004
  Serious: Yes (Other)
  Sender: FDA-Public Use
  Company Number: ES-TEVA-2019-ES-1080600

PATIENT
  Age: 87 Year
  Sex: Female

DRUGS (7)
  1. FUROSEMIDA 40 MG 30 TABLETS [Suspect]
     Active Substance: FUROSEMIDE
     Indication: HYPERTENSION
     Dosage: 1-0-0 ALTERNATES 1-1-0 EVERY 48 HOURS
     Route: 048
     Dates: start: 2017
  2. LOSARTAN 50 MG 28 TABLETS [Suspect]
     Active Substance: LOSARTAN
     Indication: HYPERTENSION
     Dosage: 50 MILLIGRAM DAILY; 1/24H
     Route: 048
     Dates: start: 2018, end: 20181205
  3. NOVOMIX 30 FLEXPEN 100 U/ML, INJECTABLE SUSPENSION IN A PRELOADED PEN, [Concomitant]
     Route: 058
  4. SERTRALINE 50 MG 30 TABLETS [Concomitant]
     Route: 048
  5. ADIRO 100 MG EFG GASTRORRESISTANT TABLETS [Suspect]
     Active Substance: ASPIRIN
     Indication: TYPE 2 DIABETES MELLITUS
     Dosage: 100 MILLIGRAM DAILY; 0-1-0
     Route: 048
     Dates: start: 2005
  6. OMEPRAZOL 20 MG 28 CAPSULES [Concomitant]
     Route: 048
  7. ATARAX 25 MG TABLETS COVERED WITH PELICULA , 50 TABLETS [Concomitant]
     Route: 048

REACTIONS (2)
  - Hyperkalaemia [Recovered/Resolved]
  - Acute kidney injury [Not Recovered/Not Resolved]

NARRATIVE: CASE EVENT DATE: 2018
